FAERS Safety Report 10389702 (Version 2)
Quarter: 2014Q3

REPORT INFORMATION
  Report Type: Report from Study
  Country: ZA (occurrence: ZA)
  Receive Date: 20140818
  Receipt Date: 20140908
  Transmission Date: 20150326
  Serious: Yes (Hospitalization, Other)
  Sender: FDA-Public Use
  Company Number: ZA-CELGENEUS-143-10004-14080617

PATIENT
  Age: 41 Year
  Sex: Male
  Weight: 154.2 kg

DRUGS (7)
  1. HEXA-BLOK [Concomitant]
     Indication: HYPERTENSION
     Dosage: 50 MILLIGRAM
     Route: 048
     Dates: start: 201010, end: 20140705
  2. TRAMCET [Concomitant]
     Active Substance: ACETAMINOPHEN\TRAMADOL
     Indication: NECK PAIN
     Route: 048
     Dates: start: 20131021, end: 20140705
  3. FOLIC ACID. [Concomitant]
     Active Substance: FOLIC ACID
     Indication: SUPPLEMENTATION THERAPY
     Dosage: 5 MILLIGRAM
     Route: 048
     Dates: start: 20080704, end: 20140705
  4. METHOTREXATE [Suspect]
     Active Substance: METHOTREXATE
     Indication: PSORIATIC ARTHROPATHY
     Dosage: 25 MILLIGRAM
     Route: 058
     Dates: start: 20120821, end: 20140705
  5. SALAZOPYRIN [Suspect]
     Active Substance: SULFASALAZINE
     Indication: PSORIATIC ARTHROPATHY
     Dosage: 2 GRAM
     Route: 048
     Dates: start: 20110304, end: 20140705
  6. CC-10004 [Suspect]
     Active Substance: APREMILAST
     Indication: PSORIATIC ARTHROPATHY
     Route: 048
     Dates: end: 20140704
  7. COXFLAM [Suspect]
     Active Substance: MELOXICAM
     Indication: PSORIATIC ARTHROPATHY
     Dosage: 15 MILLIGRAM
     Route: 048
     Dates: start: 20061027, end: 20140705

REACTIONS (6)
  - Intestinal perforation [Not Recovered/Not Resolved]
  - Inguinal hernia, obstructive [Not Recovered/Not Resolved]
  - Scrotal abscess [Recovered/Resolved]
  - Renal tubular necrosis [Recovered/Resolved]
  - Septic shock [Not Recovered/Not Resolved]
  - Sepsis [Recovering/Resolving]

NARRATIVE: CASE EVENT DATE: 20140704
